FAERS Safety Report 11192903 (Version 1)
Quarter: 2015Q2

REPORT INFORMATION
  Report Type: Report from Study
  Country: US (occurrence: US)
  Receive Date: 20150616
  Receipt Date: 20150616
  Transmission Date: 20150821
  Serious: Yes (Other)
  Sender: FDA-Public Use
  Company Number: PHEH2015US010767

PATIENT
  Age: 35 Year
  Sex: Female
  Weight: 91.16 kg

DRUGS (13)
  1. GILENYA [Suspect]
     Active Substance: FINGOLIMOD HYDROCHLORIDE
     Indication: MULTIPLE SCLEROSIS
     Dosage: 0.5 MG, QD
     Route: 048
     Dates: start: 20121228
  2. VITAMIN D3 [Concomitant]
     Active Substance: CHOLECALCIFEROL
     Indication: PRODUCT USED FOR UNKNOWN INDICATION
     Route: 065
  3. CLONAZEPAM. [Concomitant]
     Active Substance: CLONAZEPAM
     Indication: ANXIETY
     Dosage: 0.5 MG, TID
     Route: 065
  4. VITAMIN D [Concomitant]
     Active Substance: CHOLECALCIFEROL
     Indication: ASTHENIA
     Route: 065
  5. AMITRIPTYLINE HCL [Concomitant]
     Active Substance: AMITRIPTYLINE
     Indication: PAIN
     Dosage: UNK UNK, QHS
     Route: 065
  6. LOESTRIN NOS [Concomitant]
     Active Substance: ETHINYL ESTRADIOL\NORETHINDRONE ACETATE
     Indication: PRODUCT USED FOR UNKNOWN INDICATION
     Route: 065
  7. PROAIR HFA [Concomitant]
     Active Substance: ALBUTEROL SULFATE
     Indication: PRODUCT USED FOR UNKNOWN INDICATION
     Route: 065
  8. IMITREX [Concomitant]
     Active Substance: SUMATRIPTAN\SUMATRIPTAN SUCCINATE
     Indication: PRODUCT USED FOR UNKNOWN INDICATION
     Route: 065
  9. KEPPRA [Concomitant]
     Active Substance: LEVETIRACETAM
     Indication: EPILEPSY
     Route: 065
  10. PROZAC [Concomitant]
     Active Substance: FLUOXETINE HYDROCHLORIDE
     Indication: DEPRESSION
     Route: 065
  11. AMITRIPTYLINE HCL [Concomitant]
     Active Substance: AMITRIPTYLINE
     Indication: DEPRESSION
  12. LORTAB [Concomitant]
     Active Substance: ACETAMINOPHEN\HYDROCODONE BITARTRATE
     Indication: PRODUCT USED FOR UNKNOWN INDICATION
     Route: 065
  13. GILENYA [Suspect]
     Active Substance: FINGOLIMOD HYDROCHLORIDE
     Dosage: 0.5 MG, QD
     Route: 048
     Dates: start: 20140317

REACTIONS (32)
  - Hypoaesthesia [Unknown]
  - Altered state of consciousness [Unknown]
  - Tardive dyskinesia [Unknown]
  - Disturbance in attention [Unknown]
  - Insomnia [Unknown]
  - Amnesia [Unknown]
  - Aphasia [Recovering/Resolving]
  - Fall [Unknown]
  - Headache [Unknown]
  - Central nervous system lesion [Unknown]
  - Weight increased [Unknown]
  - Psychiatric symptom [Unknown]
  - Myalgia [Unknown]
  - Cyanosis [Unknown]
  - Nervous system disorder [Unknown]
  - Gait disturbance [Unknown]
  - Loss of consciousness [Unknown]
  - Saccadic eye movement [Unknown]
  - Muscular weakness [Unknown]
  - Vibratory sense increased [Unknown]
  - Hyperreflexia [Unknown]
  - Facial asymmetry [Unknown]
  - Hemiparesis [Unknown]
  - Dysarthria [Unknown]
  - Coordination abnormal [Unknown]
  - Extensor plantar response [Unknown]
  - Seizure [Unknown]
  - Olfactory nerve disorder [Unknown]
  - Cerebellar syndrome [Unknown]
  - Fatigue [Unknown]
  - Paraesthesia [Unknown]
  - Motor dysfunction [Unknown]

NARRATIVE: CASE EVENT DATE: 20140410
